FAERS Safety Report 8230869-4 (Version None)
Quarter: 2012Q1

REPORT INFORMATION
  Report Type: 
  Country: None (occurrence: None)
  Receive Date: 20120323
  Receipt Date: 20120314
  Transmission Date: 20120608
  Serious: Yes (Other)
  Sender: FDA-Public Use
  Company Number: US-BRISTOL-MYERS SQUIBB COMPANY-16402182

PATIENT
  Age: 56 Year
  Sex: Female

DRUGS (25)
  1. CODEINE [Suspect]
  2. LISINOPRIL [Concomitant]
     Indication: BLOOD PRESSURE
  3. RANITIDINE [Concomitant]
     Indication: URTICARIA
  4. LANTUS [Concomitant]
     Indication: DIABETES MELLITUS
     Dosage: 1DF=26 UNITS
     Route: 058
  5. IBUPROFEN (ADVIL) [Concomitant]
  6. ULTRAM [Suspect]
  7. LISINOPRIL [Concomitant]
     Indication: RENAL DISORDER
  8. CETIRIZINE [Concomitant]
     Indication: URTICARIA
  9. HYDROXYZINE PAMOATE [Concomitant]
     Indication: URTICARIA
  10. MECLIZINE [Concomitant]
     Indication: VERTIGO
     Dosage: ONE TABS EVERY FOUR TO SIX HOURS
  11. VICODIN [Suspect]
  12. TRAZODONE HCL [Concomitant]
     Indication: DEPRESSION
  13. FUROSEMIDE [Concomitant]
     Indication: FLUID RETENTION
  14. LEVOTHYROXINE SODIUM [Concomitant]
     Indication: THYROID DISORDER
  15. GLIPIZIDE [Concomitant]
     Indication: DIABETES MELLITUS
     Dosage: 10MG ONE TABLET TWICE DAILY
  16. LIPITOR [Concomitant]
     Indication: BLOOD CHOLESTEROL
     Dosage: 40MG 2 TABLETS PER DAY
  17. TRAZODONE HCL [Concomitant]
     Indication: MENOPAUSE
  18. NAPROXEN [Concomitant]
     Indication: PAIN
     Dosage: 220MG TABS: 2 IN MORNING AND 2 AT NIGHT
  19. DOCUSATE SODIUM [Concomitant]
     Indication: CONSTIPATION
  20. CYCLOBENZAPRINE HCL [Concomitant]
     Indication: FIBROMYALGIA
  21. GLUCOPHAGE [Suspect]
  22. OMEPRAZOLE [Concomitant]
     Indication: GASTROOESOPHAGEAL REFLUX DISEASE
     Route: 048
  23. ELAVIL [Suspect]
  24. TRAZODONE HCL [Concomitant]
     Indication: SLEEP DISORDER
  25. TRIAMCINOLONE ACETONIDE [Concomitant]
     Indication: ECZEMA

REACTIONS (5)
  - LOSS OF CONSCIOUSNESS [None]
  - DRUG HYPERSENSITIVITY [None]
  - ABDOMINAL PAIN [None]
  - DIARRHOEA [None]
  - VOMITING [None]
